FAERS Safety Report 6897338-5 (Version None)
Quarter: 2010Q3

REPORT INFORMATION
  Report Type: 
  Country: None (occurrence: None)
  Receive Date: 20100729
  Receipt Date: 20100714
  Transmission Date: 20110219
  Serious: Yes (Hospitalization)
  Sender: FDA-Public Use
  Company Number: 2010RR-36157

PATIENT
  Age: 75 Year
  Sex: Female

DRUGS (2)
  1. DOXYCYCLINE [Suspect]
     Indication: MYCOBACTERIUM FORTUITUM INFECTION
     Dosage: 20 MG, ORAL
     Route: 048
  2. LEVOFLOXACIN [Concomitant]

REACTIONS (2)
  - DYSTHYMIC DISORDER [None]
  - PANCREATITIS ACUTE [None]
